FAERS Safety Report 23605451 (Version 1)
Quarter: 2024Q1

REPORT INFORMATION
  Report Type: Spontaneous
  Country: US (occurrence: US)
  Receive Date: 20240307
  Receipt Date: 20240307
  Transmission Date: 20240409
  Serious: Yes (Hospitalization)
  Sender: FDA-Public Use
  Company Number: US-OTSUKA-2024_005720

PATIENT
  Sex: Female
  Weight: 65.77 kg

DRUGS (1)
  1. REXULTI [Suspect]
     Active Substance: BREXPIPRAZOLE
     Indication: Affective disorder
     Dosage: 1.5 MG, QD
     Route: 065

REACTIONS (3)
  - Post-traumatic stress disorder [Unknown]
  - Product use in unapproved indication [Unknown]
  - Product availability issue [Unknown]
